FAERS Safety Report 24078390 (Version 1)
Quarter: 2024Q3

REPORT INFORMATION
  Report Type: Spontaneous
  Country: IT (occurrence: IT)
  Receive Date: 20240711
  Receipt Date: 20240711
  Transmission Date: 20241016
  Serious: Yes (Death, Other)
  Sender: Long Grove Pharmaceuticals
  Company Number: IT-Long Grove-000058

PATIENT
  Age: 33 Year
  Sex: Male

DRUGS (9)
  1. METHADONE [Suspect]
     Active Substance: METHADONE HYDROCHLORIDE
  2. MORPHINE [Suspect]
     Active Substance: MORPHINE
  3. CODEINE [Suspect]
     Active Substance: CODEINE
  4. HEROIN [Suspect]
     Active Substance: DIAMORPHINE
  5. ALPRAZOLAM [Suspect]
     Active Substance: ALPRAZOLAM
  6. NORDAZEPAM [Suspect]
     Active Substance: NORDAZEPAM
  7. FLURAZEPAM [Suspect]
     Active Substance: FLURAZEPAM HYDROCHLORIDE
  8. BENZOYLECGONINE [Suspect]
     Active Substance: BENZOYLECGONINE
  9. XYLAZINE [Suspect]
     Active Substance: XYLAZINE

REACTIONS (3)
  - Drug abuse [Fatal]
  - Toxicity to various agents [Fatal]
  - Cardiopulmonary failure [Fatal]
